FAERS Safety Report 17204348 (Version 2)
Quarter: 2019Q4

REPORT INFORMATION
  Report Type: Spontaneous
  Country: CA (occurrence: CA)
  Receive Date: 20191226
  Receipt Date: 20191227
  Transmission Date: 20200122
  Serious: Yes (Death, Hospitalization)
  Sender: FDA-Public Use
  Company Number: CA-BAYER-2019-234923

PATIENT
  Age: 88 Year
  Sex: Male

DRUGS (2)
  1. RESTORALAX [Suspect]
     Active Substance: POLYETHYLENE GLYCOL 3350
     Indication: CONSTIPATION
     Dosage: DISSOLVED IN ABOUT 250 ML OF LIQUID
  2. STARCH [Suspect]
     Active Substance: STARCH
     Dosage: UNK

REACTIONS (5)
  - Aspiration [Fatal]
  - Wrong technique in product usage process [None]
  - Off label use [None]
  - Dysphagia [None]
  - Product use in unapproved indication [None]
